FAERS Safety Report 9144890 (Version 2)
Quarter: 2013Q1

REPORT INFORMATION
  Report Type: Spontaneous
  Country: CL (occurrence: CL)
  Receive Date: 20130307
  Receipt Date: 20130315
  Transmission Date: 20140127
  Serious: Yes (Death)
  Sender: FDA-Public Use
  Company Number: CL-GE HEALTHCARE MEDICAL DIAGNOSTICS-VISP-PR-1302S-0430

PATIENT
  Age: 60 Year
  Sex: Male
  Weight: 65 kg

DRUGS (2)
  1. VISIPAQUE [Suspect]
     Indication: PROSTATE CANCER
     Route: 042
     Dates: start: 20130206, end: 20130206
  2. VISIPAQUE [Suspect]
     Indication: DIAGNOSTIC PROCEDURE

REACTIONS (4)
  - Cardiopulmonary failure [Fatal]
  - Cardiac arrest [Fatal]
  - Arrhythmia [Not Recovered/Not Resolved]
  - Syncope [Not Recovered/Not Resolved]
